FAERS Safety Report 9361078 (Version 2)
Quarter: 2013Q3

REPORT INFORMATION
  Report Type: Report from Study
  Country: CA (occurrence: CA)
  Receive Date: 20130621
  Receipt Date: 20130814
  Transmission Date: 20140515
  Serious: Yes (Death)
  Sender: FDA-Public Use
  Company Number: CA-ASTELLAS-2013EU004303

PATIENT
  Age: 59 Year
  Sex: Male
  Weight: 71.7 kg

DRUGS (8)
  1. BLINDED ENZALUTAMIDE [Suspect]
     Indication: PROSTATE CANCER
     Dosage: 160 MG, UID/QD
     Route: 048
     Dates: start: 20120606
  2. TRAZODONE [Concomitant]
     Indication: INSOMNIA
     Dosage: 50 MG, UID/QD
     Route: 048
     Dates: start: 2009
  3. EFFEXOR [Concomitant]
     Indication: DEPRESSION
     Dosage: 37.5 MG, UID/QD
     Route: 048
     Dates: start: 2009
  4. MULTIVITAMIN                       /00097801/ [Concomitant]
     Indication: VITAMIN SUPPLEMENTATION
     Dosage: 1 DF, UID/QD
     Route: 048
     Dates: start: 2007
  5. ADVIL                              /00044201/ [Concomitant]
     Indication: JOINT STIFFNESS
     Dosage: 400 MG, PRN
     Route: 048
     Dates: start: 2009
  6. ASA [Concomitant]
     Indication: BACK PAIN
     Dosage: 2 DF, PRN
     Route: 048
     Dates: start: 20120606
  7. ALEVE [Concomitant]
     Indication: PAIN
     Dosage: 1 DF, PRN
     Route: 048
     Dates: start: 20120926
  8. ELIGARD [Concomitant]
     Indication: PROSTATE CANCER
     Dosage: 45 MG, CYCLIC
     Route: 048
     Dates: start: 20100510

REACTIONS (1)
  - Drowning [Fatal]
